FAERS Safety Report 12712882 (Version 1)
Quarter: 2016Q3

REPORT INFORMATION
  Report Type: Spontaneous
  Country: GB (occurrence: GB)
  Receive Date: 20160902
  Receipt Date: 20160902
  Transmission Date: 20161109
  Serious: Yes (Other)
  Sender: FDA-Public Use
  Company Number: GB-JNJFOC-20160713427

PATIENT
  Sex: Female

DRUGS (2)
  1. XARELTO [Suspect]
     Active Substance: RIVAROXABAN
     Indication: PRODUCT USED FOR UNKNOWN INDICATION
     Route: 048
     Dates: start: 201508
  2. BISOPROLOL [Concomitant]
     Active Substance: BISOPROLOL
     Dosage: 2.5 (UNITS UNSPECIFIED)
     Route: 065
     Dates: start: 201506

REACTIONS (2)
  - Platelet count decreased [Not Recovered/Not Resolved]
  - Platelet morphology abnormal [Unknown]

NARRATIVE: CASE EVENT DATE: 2016
